FAERS Safety Report 12045488 (Version 2)
Quarter: 2017Q1

REPORT INFORMATION
  Report Type: Spontaneous
  Country: US (occurrence: US)
  Receive Date: 20160208
  Receipt Date: 20170131
  Transmission Date: 20170428
  Serious: No
  Sender: FDA-Public Use
  Company Number: US-ABBVIE-15P-163-1410007-00

PATIENT

DRUGS (2)
  1. HUMIRA [Suspect]
     Active Substance: ADALIMUMAB
     Indication: COLITIS ULCERATIVE
  2. HUMIRA [Suspect]
     Active Substance: ADALIMUMAB
     Indication: CROHN^S DISEASE
     Route: 058

REACTIONS (12)
  - Crohn^s disease [Unknown]
  - Frustration tolerance decreased [Unknown]
  - Depressed mood [Unknown]
  - Drug ineffective [Unknown]
  - Haemorrhage [Unknown]
  - Fatigue [Unknown]
  - Anger [Unknown]
  - Asthenia [Unknown]
  - Nausea [Unknown]
  - Frequent bowel movements [Unknown]
  - Colitis ulcerative [Unknown]
  - Pain [Unknown]
